FAERS Safety Report 11363902 (Version 1)
Quarter: 2015Q3

REPORT INFORMATION
  Report Type: Spontaneous
  Country: US (occurrence: None)
  Receive Date: 20150810
  Receipt Date: 20150810
  Transmission Date: 20151125
  Serious: Yes (Other)
  Sender: FDA-Public Use
  Company Number: None

PATIENT
  Age: 24 Year
  Sex: Male
  Weight: 65.77 kg

DRUGS (18)
  1. DANTRIUM [Concomitant]
     Active Substance: DANTROLENE SODIUM
  2. NASONEX [Concomitant]
     Active Substance: MOMETASONE FUROATE
  3. PATADAY [Concomitant]
     Active Substance: OLOPATADINE HYDROCHLORIDE
  4. VANCOMYCIN [Concomitant]
     Active Substance: VANCOMYCIN
  5. BACLOFEN. [Concomitant]
     Active Substance: BACLOFEN
  6. GREERS GOO [Concomitant]
  7. CEFEPIME [Suspect]
     Active Substance: CEFEPIME HYDROCHLORIDE
     Indication: PNEUMONIA
     Dates: start: 20150704, end: 20150705
  8. IPRATROPIUM [Concomitant]
     Active Substance: IPRATROPIUM
  9. SENNA TABS [Concomitant]
     Active Substance: SENNOSIDES A AND B
  10. POLYETHYLENE GLYCOL SUPPOSITORY [Concomitant]
  11. TYLENOL [Concomitant]
     Active Substance: ACETAMINOPHEN
  12. LEVALBUTEROL. [Concomitant]
     Active Substance: LEVALBUTEROL
  13. ZOFRAN [Concomitant]
     Active Substance: ONDANSETRON HYDROCHLORIDE
  14. ZYRTEC [Concomitant]
     Active Substance: CETIRIZINE HYDROCHLORIDE
  15. GLYCOLAX [Concomitant]
     Active Substance: POLYETHYLENE GLYCOL 3350
  16. EXCEDRIN [Concomitant]
     Active Substance: ACETAMINOPHEN\ASPIRIN\CAFFEINE
  17. FLOMAX [Concomitant]
     Active Substance: TAMSULOSIN HYDROCHLORIDE
  18. PRILOSEC [Concomitant]
     Active Substance: OMEPRAZOLE MAGNESIUM

REACTIONS (12)
  - Rash [None]
  - Skin swelling [None]
  - Epistaxis [None]
  - Dyspnoea [None]
  - Hallucination [None]
  - Nausea [None]
  - Muscle spasms [None]
  - Erythema [None]
  - Injection site pain [None]
  - Asthenia [None]
  - Pyrexia [None]
  - Abdominal pain upper [None]

NARRATIVE: CASE EVENT DATE: 20150704
